FAERS Safety Report 8507992-X (Version None)
Quarter: 2012Q3

REPORT INFORMATION
  Report Type: 
  Country: None (occurrence: None)
  Receive Date: 20120713
  Receipt Date: 20120703
  Transmission Date: 20120928
  Serious: Yes (Life-Threatening, Hospitalization)
  Sender: FDA-Public Use
  Company Number: FI-MPIJNJ-2012-04721

PATIENT

DRUGS (3)
  1. DEXAMETHASONE [Concomitant]
     Indication: MULTIPLE MYELOMA
     Dosage: 39 MG, UNK
     Route: 048
     Dates: start: 20120507, end: 20120606
  2. VELCADE [Suspect]
     Indication: MULTIPLE MYELOMA
     Dosage: 2.6 MG, UNK
     Route: 058
     Dates: start: 20120507, end: 20120604
  3. EPOETIN ZETA [Concomitant]
     Dosage: 30000 IU, UNK
     Route: 058
     Dates: start: 20120528

REACTIONS (3)
  - DYSPNOEA [None]
  - CORONARY ARTERY DISEASE [None]
  - OFF LABEL USE [None]
